FAERS Safety Report 6533554-X (Version None)
Quarter: 2010Q1

REPORT INFORMATION
  Report Type: 
  Country: None (occurrence: None)
  Receive Date: 20100111
  Receipt Date: 20100105
  Transmission Date: 20100710
  Serious: Yes (Death)
  Sender: FDA-Public Use
  Company Number: US-ASTRAZENECA-2010SE00790

PATIENT
  Age: 43 Year
  Sex: Female

DRUGS (5)
  1. QUETIAPINE FUMARATE [Suspect]
  2. BETA BLOCKER [Suspect]
  3. TRAZODONE HCL [Suspect]
  4. IBUPROFEN [Suspect]
  5. SALICYLATE [Suspect]

REACTIONS (1)
  - DRUG TOXICITY [None]
